FAERS Safety Report 17395006 (Version 2)
Quarter: 2020Q2

REPORT INFORMATION
  Report Type: Report from Study
  Country: KR (occurrence: KR)
  Receive Date: 20200210
  Receipt Date: 20200630
  Transmission Date: 20200713
  Serious: Yes (Other)
  Sender: FDA-Public Use
  Company Number: KR-B.I. PHARMACEUTICALS,INC./RIDGEFIELD-2020-BI-005993

PATIENT
  Age: 62 Year
  Sex: Female
  Weight: 70.6 kg

DRUGS (15)
  1. AMARYL [Concomitant]
     Active Substance: GLIMEPIRIDE
     Indication: TYPE 2 DIABETES MELLITUS
     Route: 065
     Dates: start: 20131120
  2. SYNTHROID [Concomitant]
     Active Substance: LEVOTHYROXINE SODIUM
     Indication: HYPOTHYROIDISM
     Route: 065
     Dates: start: 20161222
  3. NEBILOL [Concomitant]
     Indication: ANGINA PECTORIS
     Route: 065
     Dates: start: 20180116
  4. MOLSITON [Concomitant]
     Indication: ANGINA PECTORIS
     Route: 065
     Dates: start: 20190218, end: 20190831
  5. JARDIANCE DUO [Suspect]
     Active Substance: EMPAGLIFLOZIN\METFORMIN HYDROCHLORIDE
     Indication: TYPE 2 DIABETES MELLITUS
     Dosage: STRENGTH/UNIT DOSE: 5/1000 MG
     Route: 048
     Dates: start: 20190227
  6. LANSTON LFDT [Concomitant]
     Active Substance: LANSOPRAZOLE
     Indication: PROPHYLAXIS AGAINST GASTROINTESTINAL ULCER
     Route: 065
     Dates: start: 20180813
  7. ROVAZET [Concomitant]
     Indication: ANGINA PECTORIS
     Dosage: STRENGTH:10/10 MG
     Route: 065
     Dates: start: 20190423
  8. DIABEX [Concomitant]
     Active Substance: METFORMIN HYDROCHLORIDE
     Indication: TYPE 2 DIABETES MELLITUS
     Route: 065
     Dates: start: 20160307
  9. EZETIMIBE;ROSUVASTATIN [Concomitant]
     Active Substance: EZETIMIBE\ROSUVASTATIN
     Indication: ANGINA PECTORIS
     Route: 065
     Dates: start: 20190423
  10. MOLSIDOMINE [Concomitant]
     Active Substance: MOLSIDOMINE
     Indication: ANGINA PECTORIS
     Route: 065
     Dates: start: 20190218, end: 20190831
  11. DIABEX [Concomitant]
     Active Substance: METFORMIN HYDROCHLORIDE
     Route: 065
     Dates: start: 20160718, end: 20190226
  12. MEVALOTIN [Concomitant]
     Active Substance: PRAVASTATIN SODIUM
     Indication: HYPERLIPIDAEMIA
     Route: 065
     Dates: start: 20150810, end: 20190825
  13. PLATLESS [Concomitant]
     Active Substance: CLOPIDOGREL BISULFATE
     Indication: THROMBOSIS PROPHYLAXIS
     Route: 065
     Dates: start: 20180116
  14. BRVIX [Concomitant]
     Active Substance: CLOPIDOGREL CAMSYLATE
     Indication: ANGINA PECTORIS
     Route: 065
     Dates: start: 20190423
  15. VASTINAN [Concomitant]
     Active Substance: TRIMETAZIDINE DIHYDROCHLORIDE
     Indication: ANGINA PECTORIS
     Route: 065
     Dates: start: 20100712

REACTIONS (1)
  - Cerebral infarction [Not Recovered/Not Resolved]

NARRATIVE: CASE EVENT DATE: 20190820
